FAERS Safety Report 23229810 (Version 1)
Quarter: 2023Q4

REPORT INFORMATION
  Report Type: Spontaneous
  Country: CN (occurrence: CN)
  Receive Date: 20231127
  Receipt Date: 20231127
  Transmission Date: 20240110
  Serious: Yes (Hospitalization, Other)
  Sender: FDA-Public Use
  Company Number: CN-Merck Healthcare KGaA-2023488928

PATIENT
  Age: 73 Year
  Sex: Male
  Weight: 88 kg

DRUGS (4)
  1. GLUCOPHAGE XR [Suspect]
     Active Substance: METFORMIN HYDROCHLORIDE
     Indication: Type 2 diabetes mellitus
     Dosage: EXTENDED RELEASE TABLET
     Route: 048
     Dates: start: 20231017
  2. GLUCOPHAGE XR [Suspect]
     Active Substance: METFORMIN HYDROCHLORIDE
  3. VALSARTAN [Concomitant]
     Active Substance: VALSARTAN
     Indication: Hypertension
     Route: 048
     Dates: start: 2016
  4. ASPIRIN [Concomitant]
     Active Substance: ASPIRIN
     Indication: Coronary artery disease
     Route: 048
     Dates: start: 20211026

REACTIONS (17)
  - Chest discomfort [Unknown]
  - Gastrointestinal fungal infection [Unknown]
  - Dysbiosis [Unknown]
  - Hyperkalaemia [Unknown]
  - AST/ALT ratio abnormal [Unknown]
  - Protein total increased [Unknown]
  - Blood albumin increased [Unknown]
  - Globulins increased [Unknown]
  - Blood urea increased [Unknown]
  - Blood creatinine increased [Unknown]
  - Blood uric acid increased [Unknown]
  - Blood calcium increased [Unknown]
  - Carbon dioxide combining power decreased [Unknown]
  - Haemoglobin increased [Unknown]
  - Fibrin D dimer increased [Unknown]
  - Haematocrit increased [Unknown]
  - Blood glucose increased [Unknown]

NARRATIVE: CASE EVENT DATE: 20231112
